FAERS Safety Report 11977265 (Version 1)
Quarter: 2016Q1

REPORT INFORMATION
  Report Type: Spontaneous
  Country: US (occurrence: US)
  Receive Date: 20160129
  Receipt Date: 20160129
  Transmission Date: 20160526
  Serious: No
  Sender: FDA-Public Use
  Company Number: US-GLAXOSMITHKLINE-US2016011676

PATIENT
  Age: 36 Year
  Sex: Female

DRUGS (1)
  1. ABREVA [Suspect]
     Active Substance: DOCOSANOL
     Indication: ORAL HERPES
     Dosage: 3 TO 5 TIMES,UNK
     Dates: start: 20151229, end: 20160102

REACTIONS (3)
  - Condition aggravated [Recovered/Resolved]
  - Incorrect drug administration duration [Unknown]
  - Oral herpes [Recovered/Resolved]
